FAERS Safety Report 19505795 (Version 3)
Quarter: 2022Q1

REPORT INFORMATION
  Report Type: Spontaneous
  Country: LB (occurrence: None)
  Receive Date: 20210708
  Receipt Date: 20220325
  Transmission Date: 20220424
  Serious: Yes (Other)
  Sender: FDA-Public Use
  Company Number: LB-ROCHE-2863100

PATIENT
  Age: 13 Month
  Sex: Female

DRUGS (1)
  1. EVRYSDI [Suspect]
     Active Substance: RISDIPLAM
     Indication: Spinal muscular atrophy
     Route: 065

REACTIONS (6)
  - Coma [Unknown]
  - Pneumonia [Unknown]
  - Brain hypoxia [Unknown]
  - Brain injury [Unknown]
  - Pain [Unknown]
  - Fatigue [Unknown]
